FAERS Safety Report 21840475 (Version 2)
Quarter: 2023Q1

REPORT INFORMATION
  Report Type: Spontaneous
  Country: US (occurrence: US)
  Receive Date: 20230110
  Receipt Date: 20230116
  Transmission Date: 20230418
  Serious: Yes (Other)
  Sender: FDA-Public Use
  Company Number: US-SA-SAC20230106000144

PATIENT
  Age: 14 Year
  Sex: Male

DRUGS (8)
  1. ELOCTATE [Suspect]
     Active Substance: EFMOROCTOCOG ALFA
     Indication: Factor VIII deficiency
     Dosage: 1588 U, PRN
     Route: 042
     Dates: start: 20190320
  2. ELOCTATE [Suspect]
     Active Substance: EFMOROCTOCOG ALFA
     Indication: Factor VIII deficiency
     Dosage: 1588 U, PRN
     Route: 042
     Dates: start: 20190320
  3. ELOCTATE [Suspect]
     Active Substance: EFMOROCTOCOG ALFA
     Dosage: 1588 U, QD
     Route: 042
     Dates: start: 20221213, end: 20221215
  4. ELOCTATE [Suspect]
     Active Substance: EFMOROCTOCOG ALFA
     Dosage: 1588 U, QD
     Route: 042
     Dates: start: 20221213, end: 20221215
  5. ELOCTATE [Suspect]
     Active Substance: EFMOROCTOCOG ALFA
     Dosage: 1530 U, PRN (FOR MILD TO MODERATE BLEEDING)
     Route: 042
     Dates: start: 202210
  6. ELOCTATE [Suspect]
     Active Substance: EFMOROCTOCOG ALFA
     Dosage: 1530 U, PRN (FOR MILD TO MODERATE BLEEDING)
     Route: 042
     Dates: start: 202210
  7. ELOCTATE [Suspect]
     Active Substance: EFMOROCTOCOG ALFA
     Dosage: 3060 U, PRN (FOR SEVERE BLEEDING)
     Route: 042
  8. ELOCTATE [Suspect]
     Active Substance: EFMOROCTOCOG ALFA
     Dosage: 3060 U, PRN (FOR SEVERE BLEEDING)
     Route: 042

REACTIONS (2)
  - Haemorrhage [Unknown]
  - Haemorrhage [Recovered/Resolved]

NARRATIVE: CASE EVENT DATE: 20221213
